FAERS Safety Report 12401044 (Version 3)
Quarter: 2020Q3

REPORT INFORMATION
  Report Type: Spontaneous
  Country: US (occurrence: US)
  Receive Date: 20160525
  Receipt Date: 20200921
  Transmission Date: 20201102
  Serious: No
  Sender: FDA-Public Use
  Company Number: US-SA-2015SA143382

PATIENT

DRUGS (1)
  1. LANTUS [Suspect]
     Active Substance: INSULIN GLARGINE
     Indication: TYPE 2 DIABETES MELLITUS
     Dosage: UNK, HS
     Route: 065
     Dates: start: 201505

REACTIONS (6)
  - Myalgia [Unknown]
  - Gait disturbance [Unknown]
  - Muscular weakness [Unknown]
  - Pelvic pain [Unknown]
  - Asthenia [Unknown]
  - Product storage error [Unknown]

NARRATIVE: CASE EVENT DATE: 201507
